FAERS Safety Report 4819510-8 (Version None)
Quarter: 2005Q4

REPORT INFORMATION
  Report Type: 
  Country: None (occurrence: None)
  Receive Date: 20051031
  Receipt Date: 20050613
  Transmission Date: 20060501
  Serious: No
  Sender: FDA-Public Use
  Company Number: 2005PV000033

PATIENT
  Age: 66 Year
  Sex: Male
  Weight: 99.7913 kg

DRUGS (13)
  1. SYMLIN [Suspect]
     Indication: DIABETES MELLITUS INSULIN-DEPENDENT
     Dosage: 15 UG; TID; PO; SEE IMAGE
     Route: 048
     Dates: start: 20050525, end: 20050527
  2. SYMLIN [Suspect]
     Indication: DIABETES MELLITUS INSULIN-DEPENDENT
     Dosage: 15 UG; TID; PO; SEE IMAGE
     Route: 048
     Dates: start: 20050527, end: 20050531
  3. SYMLIN [Suspect]
     Indication: DIABETES MELLITUS INSULIN-DEPENDENT
     Dosage: 15 UG; TID; PO; SEE IMAGE
     Route: 048
     Dates: start: 20050531, end: 20050603
  4. SYMLIN [Suspect]
     Indication: DIABETES MELLITUS INSULIN-DEPENDENT
     Dosage: 15 UG; TID; PO; SEE IMAGE
     Route: 048
     Dates: start: 20050603, end: 20050608
  5. SYMLIN [Suspect]
     Indication: DIABETES MELLITUS INSULIN-DEPENDENT
     Dosage: 15 UG; TID; PO; SEE IMAGE
     Route: 048
     Dates: start: 20050608, end: 20050609
  6. SYMLIN [Suspect]
     Indication: DIABETES MELLITUS INSULIN-DEPENDENT
     Dosage: 15 UG; TID; PO; SEE IMAGE
     Route: 048
     Dates: start: 20050609, end: 20050609
  7. SYMLIN [Suspect]
     Indication: DIABETES MELLITUS INSULIN-DEPENDENT
     Dosage: 15 UG; TID; PO; SEE IMAGE
     Route: 048
     Dates: start: 20050609, end: 20050616
  8. SYMLIN [Suspect]
     Indication: DIABETES MELLITUS INSULIN-DEPENDENT
     Dosage: 15 UG; TID; PO; SEE IMAGE
     Route: 048
     Dates: start: 20050616
  9. SYNTHROID [Concomitant]
  10. GLUCOPHAGE [Concomitant]
  11. PLAVIX [Concomitant]
  12. HUMALOG [Concomitant]
  13. REGULAR INSULIN [Concomitant]

REACTIONS (1)
  - BLOOD GLUCOSE INCREASED [None]
